FAERS Safety Report 6795402-2 (Version None)
Quarter: 2010Q2

REPORT INFORMATION
  Report Type: 
  Country: None (occurrence: None)
  Receive Date: 20100624
  Receipt Date: 20100624
  Transmission Date: 20101027
  Serious: Yes (Hospitalization)
  Sender: FDA-Public Use
  Company Number: None

PATIENT
  Age: 42 Year
  Sex: Female

DRUGS (1)
  1. RUFINAMIDE [Suspect]
     Indication: CONVULSION
     Dosage: 200 MG
     Dates: start: 20100528

REACTIONS (3)
  - RESPIRATORY DISORDER [None]
  - STRIDOR [None]
  - WHEEZING [None]
